FAERS Safety Report 6267939-6 (Version None)
Quarter: 2009Q3

REPORT INFORMATION
  Report Type: 
  Country: None (occurrence: None)
  Receive Date: 20090713
  Receipt Date: 20090629
  Transmission Date: 20100115
  Serious: Yes (Other)
  Sender: FDA-Public Use
  Company Number: 237210K09USA

PATIENT
  Age: 32 Year
  Sex: Female

DRUGS (1)
  1. REBIF [Suspect]
     Indication: MULTIPLE SCLEROSIS
     Dosage: 44 MCG, 3 IN 1 WEEKS, SUBCUTANEOUS
     Route: 058
     Dates: start: 20081217, end: 20090501

REACTIONS (5)
  - AUTOIMMUNE DISORDER [None]
  - CHOLELITHIASIS [None]
  - HEPATITIS [None]
  - OPTIC NEURITIS [None]
  - SPLEEN DISORDER [None]
